FAERS Safety Report 4896526-7 (Version None)
Quarter: 2006Q1

REPORT INFORMATION
  Report Type: 
  Country: None (occurrence: None)
  Receive Date: 20060131
  Receipt Date: 20060120
  Transmission Date: 20060701
  Serious: Yes (Hospitalization)
  Sender: FDA-Public Use
  Company Number: DE-GLAXOSMITHKLINE-B0407347A

PATIENT
  Age: 55 Year
  Sex: Male
  Weight: 76 kg

DRUGS (3)
  1. TOPOTECAN [Suspect]
     Dosage: 1MGM2 PER DAY
     Route: 042
     Dates: start: 20051118, end: 20051122
  2. CISPLATIN [Suspect]
     Dosage: 75MGM2 SINGLE DOSE
     Route: 042
     Dates: start: 20051118, end: 20051118
  3. LASIX [Concomitant]

REACTIONS (2)
  - PYREXIA [None]
  - TONSILLITIS [None]
